FAERS Safety Report 23814487 (Version 1)
Quarter: 2024Q2

REPORT INFORMATION
  Report Type: Other
  Country: CN (occurrence: CN)
  Receive Date: 20240503
  Receipt Date: 20240503
  Transmission Date: 20240716
  Serious: Yes (Hospitalization, Other)
  Sender: FDA-Public Use
  Company Number: CN-GE HEALTHCARE-2024CSU004563

PATIENT
  Age: 40 Year
  Sex: Male
  Weight: 70 kg

DRUGS (1)
  1. VISIPAQUE [Suspect]
     Active Substance: IODIXANOL
     Indication: Imaging procedure
     Dosage: 32 GM, TOTAL
     Route: 013
     Dates: start: 20240423, end: 20240423

REACTIONS (6)
  - Blister [Recovering/Resolving]
  - Erythema of eyelid [Recovering/Resolving]
  - Swelling of eyelid [Recovering/Resolving]
  - Skin swelling [Recovering/Resolving]
  - Erythema [Recovering/Resolving]
  - Rash [Recovering/Resolving]

NARRATIVE: CASE EVENT DATE: 20240423
